FAERS Safety Report 15648445 (Version 1)
Quarter: 2018Q4

REPORT INFORMATION
  Report Type: Spontaneous
  Country: US (occurrence: US)
  Receive Date: 20181122
  Receipt Date: 20181122
  Transmission Date: 20190205
  Serious: No
  Sender: FDA-Public Use
  Company Number: US-PFIZER INC-2018478443

PATIENT
  Sex: Male

DRUGS (2)
  1. VIAGRA [Suspect]
     Active Substance: SILDENAFIL CITRATE
     Dosage: UNK
     Route: 066
  2. COCAINE [Suspect]
     Active Substance: COCAINE
     Dosage: UNK

REACTIONS (2)
  - Painful erection [Unknown]
  - Product use issue [Unknown]
